FAERS Safety Report 8113226-0 (Version None)
Quarter: 2012Q1

REPORT INFORMATION
  Report Type: 
  Country: None (occurrence: None)
  Receive Date: 20120203
  Receipt Date: 20120201
  Transmission Date: 20120608
  Serious: Yes (Life-Threatening, Hospitalization)
  Sender: FDA-Public Use
  Company Number: CA-PFIZER INC-2011214055

PATIENT
  Age: 16 Year
  Sex: Male
  Weight: 56.5 kg

DRUGS (9)
  1. ATORVASTATIN CALCIUM [Suspect]
     Dosage: 20 MG, 1X/DAY
     Route: 048
     Dates: start: 20101209, end: 20110517
  2. PHENYLEPHRINE [Suspect]
     Dosage: 100 MG, (20 TABLETS OF 5 MG) SINGLE
     Route: 048
     Dates: start: 20110911, end: 20110911
  3. IBUPROFEN (ADVIL) [Suspect]
     Dosage: 3000 MG, (30 TABLETS OF 100 MG) SINGLE
     Route: 048
     Dates: start: 20110911, end: 20110911
  4. ATORVASTATIN CALCIUM [Suspect]
     Indication: TYPE IIA HYPERLIPIDAEMIA
     Dosage: 10 MG, 1X/DAY
     Route: 048
     Dates: start: 20090526, end: 20101208
  5. ATORVASTATIN CALCIUM [Suspect]
     Dosage: 40 MG, 1X/DAY
     Route: 048
     Dates: start: 20110518
  6. ACETAMINOPHEN [Suspect]
     Dosage: 10000 MG, (20 TABLETS OF 500 MG) SINGLE
     Route: 048
     Dates: start: 20110911, end: 20110911
  7. CHLORPHENIRAMINE MALEATE [Suspect]
     Dosage: 20 MG, (10 TABLETS OF 2 MG) SINGLE
     Route: 048
     Dates: start: 20110911, end: 20110911
  8. IBUPROFEN (ADVIL) [Suspect]
     Dosage: 14400 MG, (72 TABLETS OF 200 MG) SINGLE
     Route: 048
     Dates: start: 20110911, end: 20110911
  9. BENADRYL [Suspect]
     Dosage: 1200 MG, (48 TABLETS OF 25 MG) SINGLE
     Route: 048
     Dates: start: 20110911, end: 20110911

REACTIONS (2)
  - TOXICITY TO VARIOUS AGENTS [None]
  - SUICIDE ATTEMPT [None]
